FAERS Safety Report 9314541 (Version 4)
Quarter: 2014Q2

REPORT INFORMATION
  Report Type: Report from Study
  Country: DE (occurrence: DE)
  Receive Date: 20130529
  Receipt Date: 20140411
  Transmission Date: 20141212
  Serious: Yes (Death)
  Sender: FDA-Public Use
  Company Number: DE-UCBSA-086827

PATIENT
  Sex: Female
  Weight: 73 kg

DRUGS (7)
  1. CERTOLIZUMAB PEGOL [Suspect]
     Indication: RHEUMATOID ARTHRITIS
     Dosage: NO OF DOSES: 3
     Route: 058
     Dates: start: 20111220, end: 20120124
  2. CERTOLIZUMAB PEGOL [Suspect]
     Indication: RHEUMATOID ARTHRITIS
     Dosage: NO OF DOSES 6
     Route: 058
     Dates: start: 20120207, end: 20120418
  3. METEX [Concomitant]
     Indication: RHEUMATOID ARTHRITIS
     Dosage: 7.5 MG QS
     Route: 048
     Dates: start: 2008, end: 20120514
  4. FOLIC ACID [Concomitant]
     Indication: RHEUMATOID ARTHRITIS
     Dosage: 5 MG QS
     Route: 048
     Dates: start: 2008, end: 20120514
  5. DEKRISTOL [Concomitant]
     Indication: RHEUMATOID ARTHRITIS
     Dosage: 2000 IU QS
     Route: 048
     Dates: start: 201204, end: 20120514
  6. METAMIZOL [Concomitant]
     Indication: RHEUMATOID ARTHRITIS
     Route: 048
     Dates: start: 201204, end: 20120514
  7. DECORTIN [Concomitant]
     Indication: RHEUMATOID ARTHRITIS
     Route: 048
     Dates: start: 201204, end: 20120514

REACTIONS (1)
  - Death [Fatal]
